FAERS Safety Report 9717484 (Version 2)
Quarter: 2013Q4

REPORT INFORMATION
  Report Type: Spontaneous
  Country: US (occurrence: US)
  Receive Date: 20131127
  Receipt Date: 20131127
  Transmission Date: 20140711
  Serious: No
  Sender: FDA-Public Use
  Company Number: US-GILEAD-2008-0019510

PATIENT
  Age: 70 Year
  Sex: Female
  Weight: 84.82 kg

DRUGS (12)
  1. LETAIRIS [Suspect]
     Indication: PULMONARY ARTERIAL HYPERTENSION
     Route: 048
     Dates: start: 20071119
  2. LETAIRIS [Suspect]
     Route: 048
     Dates: end: 20090107
  3. LETAIRIS [Suspect]
  4. VENTAVIS [Concomitant]
  5. COUMADIN [Concomitant]
  6. DEMADEX [Concomitant]
  7. ZAROXOLYN [Concomitant]
  8. TOPROL XL [Concomitant]
  9. ALLOPURINOL [Concomitant]
  10. K-DUR [Concomitant]
  11. PERCOCET [Concomitant]
  12. ZEMPLAR [Concomitant]

REACTIONS (2)
  - Dyspnoea [Not Recovered/Not Resolved]
  - Local swelling [Not Recovered/Not Resolved]
